FAERS Safety Report 8899728 (Version 2)
Quarter: 2013Q1

REPORT INFORMATION
  Report Type: Report from Study
  Country: CA (occurrence: CA)
  Receive Date: 20121109
  Receipt Date: 20130124
  Transmission Date: 20140127
  Serious: Yes (Other)
  Sender: FDA-Public Use
  Company Number: CA-ABBOTT-12P-028-1003457-00

PATIENT
  Sex: Female
  Weight: 55.39 kg

DRUGS (4)
  1. HUMIRA [Suspect]
     Indication: RHEUMATOID ARTHRITIS
     Route: 058
     Dates: start: 20051117, end: 20121010
  2. PREDNISONE [Concomitant]
     Indication: PRODUCT USED FOR UNKNOWN INDICATION
  3. RISEDRONATE [Concomitant]
     Indication: PRODUCT USED FOR UNKNOWN INDICATION
  4. AVALIDE [Concomitant]
     Indication: PRODUCT USED FOR UNKNOWN INDICATION

REACTIONS (4)
  - Pathological fracture [Unknown]
  - Small cell lung cancer [Unknown]
  - Metastases to bone [Unknown]
  - Metastases to liver [Unknown]
